FAERS Safety Report 8613510-8 (Version None)
Quarter: 2012Q3

REPORT INFORMATION
  Report Type: 
  Country: None (occurrence: None)
  Receive Date: 20120823
  Receipt Date: 20120809
  Transmission Date: 20120928
  Serious: Yes (Other)
  Sender: FDA-Public Use
  Company Number: PL-MYLANLABS-2012S1016811

PATIENT
  Age: 30 Year
  Sex: Female

DRUGS (8)
  1. BROMOCRIPTINE MESYLATE [Interacting]
     Indication: PROLACTINOMA
     Dosage: INCREASED TO TARGET DOSE OF 7.5MG DAILY
     Route: 065
  2. OXCARBAZEPINE [Interacting]
     Indication: POST-TRAUMATIC EPILEPSY
     Dosage: 600MG
     Route: 065
  3. KETOCONAZOLE [Interacting]
     Indication: VULVOVAGINAL MYCOTIC INFECTION
     Route: 065
  4. GABAPENTIN [Suspect]
     Indication: POST-TRAUMATIC EPILEPSY
     Route: 065
  5. LAMOTRIGINE [Suspect]
     Indication: POST-TRAUMATIC EPILEPSY
     Route: 065
  6. OXCARBAZEPINE [Interacting]
     Dosage: GRADUALLY INCREASED TO 1200 MG/DAY
     Route: 065
  7. CABERGOLINE [Interacting]
     Indication: PROLACTINOMA
     Route: 065
  8. CLARITHROMYCIN [Interacting]
     Indication: RESPIRATORY TRACT INFECTION
     Route: 065

REACTIONS (13)
  - ORTHOSTATIC HYPOTENSION [None]
  - VOMITING [None]
  - OEDEMA [None]
  - DIZZINESS [None]
  - DRUG INTERACTION [None]
  - MUCOSAL DRYNESS [None]
  - CONSTIPATION [None]
  - DIPLOPIA [None]
  - DISEASE PROGRESSION [None]
  - WEIGHT INCREASED [None]
  - DRUG EFFECT DECREASED [None]
  - PSYCHOMOTOR HYPERACTIVITY [None]
  - ABNORMAL BEHAVIOUR [None]
